FAERS Safety Report 24766422 (Version 4)
Quarter: 2025Q1

REPORT INFORMATION
  Report Type: Spontaneous
  Country: IL (occurrence: IL)
  Receive Date: 20241223
  Receipt Date: 20250205
  Transmission Date: 20250409
  Serious: Yes (Hospitalization, Other)
  Sender: REGENERON
  Company Number: IL-BAYER-2024A175890

PATIENT
  Sex: Female

DRUGS (2)
  1. EYLEA [Suspect]
     Active Substance: AFLIBERCEPT
     Indication: Diabetic retinal oedema
     Dates: start: 20241208, end: 20241208
  2. EYLEA [Suspect]
     Active Substance: AFLIBERCEPT

REACTIONS (10)
  - Blindness [Not Recovered/Not Resolved]
  - Choroidal detachment [Unknown]
  - Bacterial endophthalmitis [Unknown]
  - Eye pain [Recovering/Resolving]
  - Intraocular pressure increased [Recovered/Resolved]
  - Vitreous opacities [Recovering/Resolving]
  - Conjunctival irritation [Unknown]
  - Conjunctival haemorrhage [Unknown]
  - Corneal oedema [Unknown]
  - Intraocular pressure increased [Unknown]

NARRATIVE: CASE EVENT DATE: 20241201
